FAERS Safety Report 8937204 (Version 1)
Quarter: 2012Q4

REPORT INFORMATION
  Report Type: Spontaneous
  Country: US (occurrence: None)
  Receive Date: 20121121
  Receipt Date: 20121121
  Transmission Date: 20130627
  Serious: Yes (Other)
  Sender: FDA-Public Use
  Company Number: TPA2012A09047

PATIENT
  Sex: Female

DRUGS (7)
  1. ACTOS (PIOGLITAZONE HYDROCHLORIDE) [Suspect]
     Indication: TYPE II DIABETES MELLITUS
     Dates: start: 2006
  2. AVANDIA [Concomitant]
  3. REZULIN (TROGLITAZONE) [Concomitant]
  4. GLUCOPHAGE (METFORMIN HYDROCHLORIDE) [Concomitant]
  5. GLUCOTROL (GLIPIZIDE) [Concomitant]
  6. JANUVIA (SITAGLIPTIN PHOSPHATE) [Concomitant]
  7. BYETTA (EXENATIDE) [Concomitant]

REACTIONS (1)
  - Myocardial infarction [None]
